FAERS Safety Report 5691503-0 (Version None)
Quarter: 2008Q2

REPORT INFORMATION
  Report Type: 
  Country: None (occurrence: None)
  Receive Date: 20080401
  Receipt Date: 20080317
  Transmission Date: 20081010
  Serious: No
  Sender: FDA-Public Use
  Company Number: APP200800211

PATIENT
  Age: 59 Year
  Sex: Male

DRUGS (10)
  1. HEPARIN SODIUM INJECTION [Suspect]
     Indication: PERITONEAL DIALYSIS
     Dosage: 2000-2500 UNITS WITH EVERY DIALYSIS, INTRAPERITONEAL
     Route: 033
     Dates: start: 20080223, end: 20080225
  2. HEPARIN SODIUM INJECTION [Suspect]
     Indication: THROMBOSIS PROPHYLAXIS
     Dosage: 2000-2500 UNITS WITH EVERY DIALYSIS, INTRAPERITONEAL
     Route: 033
     Dates: start: 20080223, end: 20080225
  3. VERAPRAMIL (VERAPAMIL) [Concomitant]
  4. TRICOR (FENOFIBRATE) (ADENOSINE) [Concomitant]
  5. LYRICA (PREGABALIN) (PREGABALIN) [Concomitant]
  6. PRILOSEC (OMEPRAZOLE) (OMEPRAZOLE) [Concomitant]
  7. PHOSLO (CALCIUM ACETATE) (CALCIUM ACETATE) [Concomitant]
  8. PRENATAL VITAMINS (PRENATAL VITAMINS /01549301/) [Concomitant]
  9. ZINC (ZINC) [Concomitant]
  10. ASCORBIC ACID [Concomitant]

REACTIONS (6)
  - ABDOMINAL PAIN UPPER [None]
  - ASTHENIA [None]
  - FATIGUE [None]
  - INFLUENZA [None]
  - MALAISE [None]
  - NAUSEA [None]
